FAERS Safety Report 11611924 (Version 1)
Quarter: 2015Q4

REPORT INFORMATION
  Report Type: Spontaneous
  Country: US (occurrence: US)
  Receive Date: 20151008
  Receipt Date: 20151008
  Transmission Date: 20160304
  Serious: Yes (Hospitalization, Other)
  Sender: FDA-Public Use
  Company Number: US-DSJP-DSU-2015-118042

PATIENT

DRUGS (2)
  1. BENICAR HCT [Suspect]
     Active Substance: HYDROCHLOROTHIAZIDE\OLMESARTAN MEDOXOMIL
     Indication: HYPERTENSION
     Dosage: 25/12.5 MG QD
     Route: 048
     Dates: start: 20090112, end: 20131230
  2. BENICAR [Suspect]
     Active Substance: OLMESARTAN MEDOXOMIL
     Indication: HYPERTENSION
     Dosage: 40 MG, QD
     Route: 048

REACTIONS (17)
  - Renal cyst [Unknown]
  - Haemorrhoids [Unknown]
  - Chronic gastritis [Unknown]
  - Acute kidney injury [Unknown]
  - Renal failure [Recovered/Resolved]
  - Coeliac disease [Recovered/Resolved]
  - Diverticulum intestinal [Unknown]
  - Decreased appetite [Unknown]
  - Metaplasia [Unknown]
  - Hepatic enzyme increased [Unknown]
  - Gastric disorder [Unknown]
  - Gastric mucosal lesion [Unknown]
  - Gastrointestinal inflammation [Unknown]
  - Gastritis [Unknown]
  - Malabsorption [Recovered/Resolved]
  - Gastric ulcer [Unknown]
  - Duodenitis [Unknown]

NARRATIVE: CASE EVENT DATE: 20101222
